FAERS Safety Report 10232362 (Version 2)
Quarter: 2014Q2

REPORT INFORMATION
  Report Type: Spontaneous
  Country: US (occurrence: US)
  Receive Date: 20140612
  Receipt Date: 20140612
  Transmission Date: 20141212
  Serious: Yes (Other)
  Sender: FDA-Public Use
  Company Number: US-ACCORD-024142

PATIENT
  Age: 38 Year
  Sex: Female

DRUGS (3)
  1. IRINOTECAN [Suspect]
     Indication: COLON CANCER METASTATIC
  2. FLUOROURACIL [Suspect]
     Indication: COLON CANCER METASTATIC
  3. FOLINIC ACID [Suspect]
     Indication: COLON CANCER METASTATIC

REACTIONS (1)
  - Pancytopenia [Unknown]
